FAERS Safety Report 12729817 (Version 2)
Quarter: 2017Q1

REPORT INFORMATION
  Report Type: Spontaneous
  Country: US (occurrence: US)
  Receive Date: 20160909
  Receipt Date: 20170103
  Transmission Date: 20170428
  Serious: Yes (Other)
  Sender: FDA-Public Use
  Company Number: US-ENDO PHARMACEUTICALS INC.-2016-005512

PATIENT
  Sex: Female
  Weight: 49.03 kg

DRUGS (1)
  1. SUMAVEL DOSEPRO [Suspect]
     Active Substance: SUMATRIPTAN SUCCINATE
     Indication: MIGRAINE
     Route: 058
     Dates: start: 2011

REACTIONS (6)
  - Vomiting [Unknown]
  - Insomnia [Unknown]
  - Drug ineffective [Recovered/Resolved]
  - Injection site haemorrhage [Unknown]
  - Tremor [Unknown]
  - Injection site pain [Unknown]

NARRATIVE: CASE EVENT DATE: 2011
